FAERS Safety Report 17706711 (Version 1)
Quarter: 2020Q2

REPORT INFORMATION
  Report Type: Spontaneous
  Country: CA (occurrence: CA)
  Receive Date: 20200424
  Receipt Date: 20200424
  Transmission Date: 20200714
  Serious: Yes (Death, Life-Threatening)
  Sender: FDA-Public Use
  Company Number: NVSC2020CA108434

PATIENT
  Age: 57 Year
  Sex: Male

DRUGS (41)
  1. METHOTREXATE SODIUM. [Suspect]
     Active Substance: METHOTREXATE SODIUM
     Indication: RHEUMATOID ARTHRITIS
  2. ACTEMRA [Suspect]
     Active Substance: TOCILIZUMAB
     Indication: SYSTEMIC LUPUS ERYTHEMATOSUS
     Dosage: UNK
     Route: 065
  3. ARAVA [Suspect]
     Active Substance: LEFLUNOMIDE
     Indication: SYSTEMIC LUPUS ERYTHEMATOSUS
     Dosage: UNK
     Route: 065
  4. HYDROXYCHLOROQUINE [Suspect]
     Active Substance: HYDROXYCHLOROQUINE
     Indication: SYSTEMIC LUPUS ERYTHEMATOSUS
     Dosage: UNK
     Route: 065
  5. SULFASALAZINE. [Suspect]
     Active Substance: SULFASALAZINE
     Indication: SYSTEMIC LUPUS ERYTHEMATOSUS
     Dosage: 500 MG
     Route: 065
  6. MARIJUANA [Suspect]
     Active Substance: CANNABIS SATIVA SUBSP. INDICA TOP
     Indication: PAIN
     Dosage: UNK
     Route: 065
  7. ORENCIA [Suspect]
     Active Substance: ABATACEPT
     Indication: SYSTEMIC LUPUS ERYTHEMATOSUS
     Dosage: UNK
     Route: 042
  8. MINOCYCLINE HYDROCHLORIDE. [Suspect]
     Active Substance: MINOCYCLINE HYDROCHLORIDE
     Indication: PRODUCT USED FOR UNKNOWN INDICATION
     Route: 065
  9. ILARIS [Suspect]
     Active Substance: CANAKINUMAB
     Indication: RHEUMATOID ARTHRITIS
  10. HUMIRA [Suspect]
     Active Substance: ADALIMUMAB
     Indication: SYSTEMIC LUPUS ERYTHEMATOSUS
     Route: 058
  11. PLAQUENIL [Suspect]
     Active Substance: HYDROXYCHLOROQUINE SULFATE
     Indication: RHEUMATOID ARTHRITIS
  12. REMICADE [Suspect]
     Active Substance: INFLIXIMAB
     Indication: SYSTEMIC LUPUS ERYTHEMATOSUS
     Route: 042
  13. LEFLUNOMIDA [Suspect]
     Active Substance: LEFLUNOMIDE
     Indication: SYSTEMIC LUPUS ERYTHEMATOSUS
     Route: 065
  14. SULFASALAZINE. [Suspect]
     Active Substance: SULFASALAZINE
     Indication: RHEUMATOID ARTHRITIS
  15. RITUXIMAB. [Suspect]
     Active Substance: RITUXIMAB
     Indication: SYSTEMIC LUPUS ERYTHEMATOSUS
     Dosage: UNK
     Route: 065
  16. GOLD [Suspect]
     Active Substance: GOLD
     Indication: RHEUMATOID ARTHRITIS
  17. OXYCODONE [Suspect]
     Active Substance: OXYCODONE
     Indication: PAIN
     Dosage: 10 MG
     Route: 065
  18. REMICADE [Suspect]
     Active Substance: INFLIXIMAB
     Indication: RHEUMATOID ARTHRITIS
  19. SODIUM AUROTHIOMALATE [Suspect]
     Active Substance: GOLD SODIUM THIOMALATE
     Indication: SYSTEMIC LUPUS ERYTHEMATOSUS
     Dosage: UNK
     Route: 051
  20. METHOTREXATE. [Suspect]
     Active Substance: METHOTREXATE
     Indication: PRODUCT USED FOR UNKNOWN INDICATION
     Route: 065
  21. RITUXIMAB. [Suspect]
     Active Substance: RITUXIMAB
     Indication: RHEUMATOID ARTHRITIS
  22. ARAVA [Suspect]
     Active Substance: LEFLUNOMIDE
     Indication: RHEUMATOID ARTHRITIS
  23. ORENCIA [Suspect]
     Active Substance: ABATACEPT
     Indication: RHEUMATOID ARTHRITIS
  24. PLAQUENIL [Suspect]
     Active Substance: HYDROXYCHLOROQUINE SULFATE
     Indication: SYSTEMIC LUPUS ERYTHEMATOSUS
     Dosage: UNK
     Route: 065
  25. METHOTREXATE SODIUM. [Suspect]
     Active Substance: METHOTREXATE SODIUM
     Indication: SYSTEMIC LUPUS ERYTHEMATOSUS
     Dosage: UNK
     Route: 065
  26. ANAKINRA [Suspect]
     Active Substance: ANAKINRA
     Indication: RHEUMATOID ARTHRITIS
  27. GOLD [Suspect]
     Active Substance: GOLD
     Indication: SYSTEMIC LUPUS ERYTHEMATOSUS
     Dosage: UNK
     Route: 065
  28. XELJANZ [Suspect]
     Active Substance: TOFACITINIB CITRATE
     Indication: PRODUCT USED FOR UNKNOWN INDICATION
     Dosage: 2 DF, QD
     Route: 048
  29. KINERET [Concomitant]
     Active Substance: ANAKINRA
     Indication: PRODUCT USED FOR UNKNOWN INDICATION
     Dosage: UNK
     Route: 065
  30. ILARIS [Suspect]
     Active Substance: CANAKINUMAB
     Indication: SYSTEMIC LUPUS ERYTHEMATOSUS
     Dosage: UNK
     Route: 058
  31. HYDROXYCHLOROQUINE [Suspect]
     Active Substance: HYDROXYCHLOROQUINE
     Indication: RHEUMATOID ARTHRITIS
  32. LEFLUNOMIDE. [Suspect]
     Active Substance: LEFLUNOMIDE
     Indication: RHEUMATOID ARTHRITIS
  33. ACTEMRA [Suspect]
     Active Substance: TOCILIZUMAB
     Indication: RHEUMATOID ARTHRITIS
  34. ENBREL [Suspect]
     Active Substance: ETANERCEPT
     Indication: SYSTEMIC LUPUS ERYTHEMATOSUS
     Dosage: UNK
     Route: 058
  35. HUMIRA [Suspect]
     Active Substance: ADALIMUMAB
     Indication: RHEUMATOID ARTHRITIS
  36. SODIUM AUROTHIOMALATE [Suspect]
     Active Substance: GOLD SODIUM THIOMALATE
     Indication: RHEUMATOID ARTHRITIS
  37. LEFLUNOMIDE. [Suspect]
     Active Substance: LEFLUNOMIDE
     Indication: SYSTEMIC LUPUS ERYTHEMATOSUS
     Route: 065
  38. ANAKINRA [Suspect]
     Active Substance: ANAKINRA
     Indication: SYSTEMIC LUPUS ERYTHEMATOSUS
     Route: 065
  39. ENBREL [Suspect]
     Active Substance: ETANERCEPT
     Indication: RHEUMATOID ARTHRITIS
  40. MINOCYCLINE [Suspect]
     Active Substance: MINOCYCLINE HYDROCHLORIDE
     Indication: PRODUCT USED FOR UNKNOWN INDICATION
     Dosage: UNK
     Route: 065
  41. LYRICA [Concomitant]
     Active Substance: PREGABALIN
     Indication: PRODUCT USED FOR UNKNOWN INDICATION
     Dosage: UNK
     Route: 065

REACTIONS (29)
  - Apparent death [Fatal]
  - Intentional product use issue [Fatal]
  - Urticaria [Fatal]
  - Drug intolerance [Fatal]
  - Thrombosis [Fatal]
  - Contraindicated product administered [Fatal]
  - Joint swelling [Fatal]
  - Red blood cell sedimentation rate increased [Fatal]
  - Drug ineffective [Fatal]
  - Myocardial infarction [Fatal]
  - Pulmonary thrombosis [Fatal]
  - Drug hypersensitivity [Fatal]
  - Diverticulitis [Fatal]
  - Pain [Fatal]
  - Sepsis [Fatal]
  - Off label use [Fatal]
  - Photosensitivity reaction [Fatal]
  - Renal failure [Fatal]
  - Stomatitis [Fatal]
  - Terminal state [Fatal]
  - Arthropathy [Fatal]
  - C-reactive protein abnormal [Fatal]
  - Feeling abnormal [Fatal]
  - Pulmonary embolism [Fatal]
  - Deep vein thrombosis [Fatal]
  - C-reactive protein increased [Fatal]
  - Haemoglobin decreased [Fatal]
  - Herpes zoster [Fatal]
  - Interstitial lung disease [Fatal]
